FAERS Safety Report 5563486-5 (Version None)
Quarter: 2007Q4

REPORT INFORMATION
  Report Type: 
  Country: None (occurrence: None)
  Receive Date: 20071217
  Receipt Date: 20070820
  Transmission Date: 20080405
  Serious: No
  Sender: FDA-Public Use
  Company Number: US-ASTRAZENECA-2007UW14223

PATIENT
  Age: 47 Year
  Sex: Male
  Weight: 86.4 kg

DRUGS (2)
  1. CRESTOR [Suspect]
     Route: 048
  2. ZETIA [Concomitant]
     Route: 048

REACTIONS (1)
  - HIGH DENSITY LIPOPROTEIN DECREASED [None]
